FAERS Safety Report 6296336-2 (Version None)
Quarter: 2009Q3

REPORT INFORMATION
  Report Type: 
  Country: None (occurrence: None)
  Receive Date: 20090804
  Receipt Date: 20090721
  Transmission Date: 20100115
  Serious: Yes (Hospitalization)
  Sender: FDA-Public Use
  Company Number: PHHY2009ES30672

PATIENT
  Age: 68 Year
  Sex: Female

DRUGS (2)
  1. VOLTAREN [Suspect]
     Indication: LUMBAR VERTEBRAL FRACTURE
     Dosage: 50 MG, TID
     Route: 048
     Dates: start: 20081101, end: 20090108
  2. IBUPROFEN [Suspect]
     Indication: LUMBAR VERTEBRAL FRACTURE
     Dosage: 600 MG, TID
     Route: 048
     Dates: start: 20081101, end: 20090108

REACTIONS (5)
  - GASTRITIS EROSIVE [None]
  - HAEMOGLOBIN DECREASED [None]
  - HIATUS HERNIA [None]
  - ULCER [None]
  - UPPER GASTROINTESTINAL HAEMORRHAGE [None]
